FAERS Safety Report 14682379 (Version 1)
Quarter: 2018Q1

REPORT INFORMATION
  Report Type: Report from Study
  Country: None (occurrence: JP)
  Receive Date: 20180326
  Receipt Date: 20180326
  Transmission Date: 20180509
  Serious: No
  Sender: FDA-Public Use
  Company Number: JP-BIOVERATIV-2018BV000129

PATIENT
  Age: 44 Year
  Sex: Male
  Weight: 72 kg

DRUGS (5)
  1. TRUVADA COMBINATION TAB [Concomitant]
     Indication: HIV INFECTION
     Route: 048
     Dates: start: 20150427
  2. ALPROLIX [Suspect]
     Active Substance: EFTRENONACOG ALFA
     Indication: FACTOR IX DEFICIENCY
     Dosage: ROUTINE TREATMENT
     Route: 042
     Dates: start: 20150223
  3. FEBURIC TABLETS [Concomitant]
     Active Substance: FEBUXOSTAT
     Indication: HYPERURICAEMIA
     Route: 048
     Dates: start: 20150223, end: 20150827
  4. NOVACT M [Concomitant]
     Indication: FACTOR IX DEFICIENCY
     Route: 065
  5. TIVICAY TAB [Concomitant]
     Indication: HIV INFECTION
     Route: 048
     Dates: start: 20150427

REACTIONS (3)
  - Arthralgia [Recovered/Resolved]
  - Muscle haemorrhage [Recovered/Resolved]
  - Joint microhaemorrhage [Recovered/Resolved]

NARRATIVE: CASE EVENT DATE: 20150324
